FAERS Safety Report 18842251 (Version 1)
Quarter: 2021Q1

REPORT INFORMATION
  Report Type: Spontaneous
  Country: US (occurrence: US)
  Receive Date: 20210203
  Receipt Date: 20210203
  Transmission Date: 20210419
  Serious: Yes (Death, Life-Threatening)
  Sender: FDA-Public Use
  Company Number: None

PATIENT
  Age: 79 Year
  Sex: Male
  Weight: 83.9 kg

DRUGS (12)
  1. LEVOTHYROXINE. [Concomitant]
     Active Substance: LEVOTHYROXINE
  2. REMDESIVIR. [Concomitant]
     Active Substance: REMDESIVIR
     Dates: start: 20210131
  3. ATORVASTATIN [Concomitant]
     Active Substance: ATORVASTATIN
  4. METOPROLOL. [Concomitant]
     Active Substance: METOPROLOL
  5. INSULIN [Concomitant]
     Active Substance: INSULIN NOS
  6. TIOTROPIUM?OLODATEROL [Concomitant]
  7. BARICITINIB. [Suspect]
     Active Substance: BARICITINIB
     Indication: COVID-19 PNEUMONIA
     Dates: start: 20210201, end: 20210203
  8. APIXIBAN [Concomitant]
     Active Substance: APIXABAN
  9. FINASTERIDE. [Concomitant]
     Active Substance: FINASTERIDE
  10. PANTOPRAZOLE [Concomitant]
     Active Substance: PANTOPRAZOLE
  11. TAMSULOSIN [Concomitant]
     Active Substance: TAMSULOSIN
  12. ACETAMINOPHEN. [Concomitant]
     Active Substance: ACETAMINOPHEN

REACTIONS (6)
  - Hypoxia [None]
  - Acute respiratory distress syndrome [None]
  - Death [None]
  - Atrial fibrillation [None]
  - Fibrin D dimer increased [None]
  - Embolism [None]

NARRATIVE: CASE EVENT DATE: 20210203
